FAERS Safety Report 6903919-2 (Version None)
Quarter: 2010Q3

REPORT INFORMATION
  Report Type: 
  Country: None (occurrence: None)
  Receive Date: 20100804
  Receipt Date: 20090126
  Transmission Date: 20110219
  Serious: No
  Sender: FDA-Public Use
  Company Number: US-PFIZER INC-2009161057

PATIENT
  Sex: Male
  Weight: 63.5 kg

DRUGS (3)
  1. LYRICA [Suspect]
     Indication: POST HERPETIC NEURALGIA
     Dosage: 100 MG, 3X/DAY
     Dates: start: 20060101
  2. METHADONE [Concomitant]
     Dosage: UNK
  3. VITAMIN TAB [Concomitant]
     Dosage: UNK

REACTIONS (1)
  - PROSTATIC SPECIFIC ANTIGEN INCREASED [None]
